FAERS Safety Report 4395808-5 (Version None)
Quarter: 2004Q3

REPORT INFORMATION
  Report Type: 
  Country: None (occurrence: None)
  Receive Date: 20040713
  Receipt Date: 20040625
  Transmission Date: 20050211
  Serious: Yes (Hospitalization)
  Sender: FDA-Public Use
  Company Number: CH-ROCHE-372165

PATIENT
  Age: 28 Year
  Sex: Male
  Weight: 60 kg

DRUGS (12)
  1. PEG-INTERFERON ALFA 2A (RO 25-8310) [Suspect]
     Route: 058
     Dates: start: 20040422
  2. RIBAVIRIN [Suspect]
     Route: 048
     Dates: start: 20040422
  3. ZYPREXA [Suspect]
     Indication: DRUG USE FOR UNKNOWN INDICATION
     Route: 065
  4. ZYPREXA [Suspect]
     Route: 065
  5. REMERON [Suspect]
     Indication: DRUG USE FOR UNKNOWN INDICATION
     Route: 065
  6. EFFEXOR [Suspect]
     Indication: DRUG USE FOR UNKNOWN INDICATION
     Route: 065
  7. ANTABUSE [Suspect]
     Indication: DRUG USE FOR UNKNOWN INDICATION
     Route: 065
  8. TRAZODONE HCL [Suspect]
     Indication: DRUG USE FOR UNKNOWN INDICATION
     Route: 065
  9. TRAZODONE HCL [Suspect]
     Route: 065
  10. METHADONE HCL [Concomitant]
  11. DEANXIT [Concomitant]
  12. AGOPTON [Concomitant]

REACTIONS (3)
  - DRUG ABUSER [None]
  - EPILEPSY [None]
  - LOSS OF CONSCIOUSNESS [None]
